FAERS Safety Report 4412357-6 (Version None)
Quarter: 2004Q2

REPORT INFORMATION
  Report Type: 
  Country: None (occurrence: None)
  Receive Date: 20040630
  Receipt Date: 20040504
  Transmission Date: 20050107
  Serious: No
  Sender: FDA-Public Use
  Company Number: 04P-163-0259543-00

PATIENT
  Age: 50 Year
  Sex: Female
  Weight: 90.2658 kg

DRUGS (5)
  1. HUMIRA [Suspect]
     Indication: RHEUMATOID ARTHRITIS
     Dosage: 40 MG 1 IN 2 WK SUBCUTANEOUS
     Route: 058
     Dates: start: 20040403
  2. CELECOXIB [Concomitant]
  3. PREDNISONE [Concomitant]
  4. LANSOPRAZOLE [Concomitant]
  5. TRAMADOL HYDROCHLORIDE [Concomitant]

REACTIONS (1)
  - ACCIDENTAL OVERDOSE [None]
